FAERS Safety Report 18387639 (Version 2)
Quarter: 2020Q4

REPORT INFORMATION
  Report Type: Report from Study
  Country: US (occurrence: US)
  Receive Date: 20201015
  Receipt Date: 20201127
  Transmission Date: 20210114
  Serious: No
  Sender: FDA-Public Use
  Company Number: NVSC2020US270715

PATIENT
  Sex: Female

DRUGS (1)
  1. COSENTYX [Suspect]
     Active Substance: SECUKINUMAB
     Indication: PSORIASIS
     Dosage: 300 MG, QMO,BENEATH THE SKIN
     Route: 058

REACTIONS (2)
  - Injection site haemorrhage [Recovered/Resolved]
  - Therapeutic product effect decreased [Unknown]
